FAERS Safety Report 14340587 (Version 1)
Quarter: 2018Q1

REPORT INFORMATION
  Report Type: Spontaneous
  Country: AU (occurrence: AU)
  Receive Date: 20180101
  Receipt Date: 20180101
  Transmission Date: 20180509
  Serious: Yes (Other)
  Sender: FDA-Public Use
  Company Number: PHHY2017AU191444

PATIENT
  Age: 34 Year
  Sex: Male

DRUGS (1)
  1. CODEINE+IBUPROFEN [Suspect]
     Active Substance: CODEINE\IBUPROFEN
     Indication: MIGRAINE
     Dosage: UNK DF, UNK
     Route: 065

REACTIONS (7)
  - Renal tubular acidosis [Recovering/Resolving]
  - Asthenia [Recovered/Resolved]
  - Gastrointestinal toxicity [Unknown]
  - Hypokalaemia [Recovered/Resolved]
  - Myalgia [Unknown]
  - Rhabdomyolysis [Unknown]
  - Iron deficiency anaemia [Unknown]
